FAERS Safety Report 16383266 (Version 1)
Quarter: 2019Q2

REPORT INFORMATION
  Report Type: Spontaneous
  Country: US (occurrence: US)
  Receive Date: 20190515
  Receipt Date: 20190515
  Transmission Date: 20190711
  Serious: Yes (Life-Threatening)
  Sender: FDA-Public Use
  Company Number: None

PATIENT
  Age: 87 Year
  Sex: Male
  Weight: 72 kg

DRUGS (23)
  1. ARTIFICIAL TEARS [Concomitant]
     Active Substance: GLYCERIN\HYPROMELLOSES\POLYETHYLENE GLYCOL 400
  2. CORTIZONE 10 [Concomitant]
     Active Substance: HYDROCORTISONE
  3. FLAXSEED CAPSULE [Concomitant]
  4. FLUTICASONE NASAL SPRAY [Concomitant]
     Active Substance: FLUTICASONE
  5. OMEGA-3 FISH OIL CAPSULE [Concomitant]
  6. METOCLOPRAMIDE. [Suspect]
     Active Substance: METOCLOPRAMIDE
     Indication: VOMITING
     Route: 048
     Dates: start: 20190513, end: 20190513
  7. OXYBUTYNIN ER 15 MG [Concomitant]
  8. METOLAZONE 2.5 MG Q 48 HR PRN [Concomitant]
  9. CALCIUM PLUS VITAMIN D [Concomitant]
     Active Substance: CALCIUM\VITAMIN D
  10. WARFARIN [Concomitant]
     Active Substance: WARFARIN
  11. ONDANSETRON [Concomitant]
     Active Substance: ONDANSETRON
  12. FUROSEMIDE 60 MG DAILY [Concomitant]
  13. ROPINIROLE 2.5 MG [Concomitant]
  14. ACETAMINOPHEN. [Concomitant]
     Active Substance: ACETAMINOPHEN
  15. DOCUSATE [Concomitant]
     Active Substance: DOCUSATE
  16. LEVOTHYROXINE 100 MCG [Concomitant]
     Active Substance: LEVOTHYROXINE
  17. METOCLOPRAMIDE. [Suspect]
     Active Substance: METOCLOPRAMIDE
     Indication: NAUSEA
     Route: 048
     Dates: start: 20190513, end: 20190513
  18. VITAMIN D [Concomitant]
     Active Substance: VITAMIN D NOS
  19. MIRALAX [Concomitant]
     Active Substance: POLYETHYLENE GLYCOL 3350
  20. TAMSULOSIN [Concomitant]
     Active Substance: TAMSULOSIN
  21. TRAMADOL. [Concomitant]
     Active Substance: TRAMADOL
  22. BISACODYL SUPPOSITORY [Concomitant]
     Active Substance: BISACODYL
  23. MULTIVITAMIN [Concomitant]
     Active Substance: VITAMINS

REACTIONS (17)
  - Mental status changes [None]
  - Dehydration [None]
  - Miosis [None]
  - Respiration abnormal [None]
  - Hypokalaemia [None]
  - Asthenia [None]
  - Lethargy [None]
  - Heart rate irregular [None]
  - Hypopnoea [None]
  - Headache [None]
  - Coma scale abnormal [None]
  - Oxygen saturation decreased [None]
  - Extrasystoles [None]
  - Renal failure [None]
  - Unresponsive to stimuli [None]
  - Breath sounds abnormal [None]
  - Troponin increased [None]

NARRATIVE: CASE EVENT DATE: 20190513
